FAERS Safety Report 4277224-X (Version None)
Quarter: 2004Q1

REPORT INFORMATION
  Report Type: 
  Country: None (occurrence: None)
  Receive Date: 20040120
  Receipt Date: 20040113
  Transmission Date: 20041129
  Serious: Yes (Disabling)
  Sender: FDA-Public Use
  Company Number: 2003022383

PATIENT
  Age: 73 Year
  Sex: Female
  Weight: 80 kg

DRUGS (6)
  1. AMLODIPINE [Suspect]
     Indication: HYPERTENSION
     Dosage: 10 MG (DAILY); ORAL
     Route: 048
     Dates: start: 20030101, end: 20030521
  2. FUROSEMIDE [Concomitant]
  3. AMIODARONE [Concomitant]
  4. URAPIDIL [Concomitant]
  5. TRAMADOL [Concomitant]
  6. SALMETEROL [Concomitant]

REACTIONS (2)
  - PHARMACEUTICAL PRODUCT COMPLAINT [None]
  - VISUAL ACUITY REDUCED [None]
